FAERS Safety Report 10097176 (Version 2)
Quarter: 2014Q2

REPORT INFORMATION
  Report Type: Report from Study
  Country: US (occurrence: US)
  Receive Date: 20140422
  Receipt Date: 20140422
  Transmission Date: 20141212
  Serious: Yes (Other)
  Sender: FDA-Public Use
  Company Number: US-EXELIXIS-XL18413003094

PATIENT
  Age: 53 Year
  Sex: Female

DRUGS (1)
  1. XL184 [Suspect]
     Indication: TRANSITIONAL CELL CARCINOMA
     Dosage: 60 MG, QD
     Route: 048
     Dates: start: 20121022

REACTIONS (1)
  - Thyroid disorder [Unknown]
